FAERS Safety Report 8198761-1 (Version None)
Quarter: 2012Q1

REPORT INFORMATION
  Report Type: 
  Country: None (occurrence: None)
  Receive Date: 20120309
  Receipt Date: 20120229
  Transmission Date: 20120608
  Serious: Yes (Hospitalization, Other)
  Sender: FDA-Public Use
  Company Number: JP-JNJFOC-20120209285

PATIENT
  Sex: Male
  Weight: 68 kg

DRUGS (11)
  1. AKINETON [Concomitant]
     Indication: PROPHYLAXIS
     Route: 048
     Dates: start: 20100526, end: 20120212
  2. SELBEX [Suspect]
     Indication: GASTRITIS
     Route: 048
     Dates: start: 20100723, end: 20120212
  3. HALOPERIDOL DECANOATE [Suspect]
     Route: 030
     Dates: start: 20100527, end: 20111205
  4. INVEGA [Suspect]
     Indication: IRRITABILITY
     Route: 048
     Dates: start: 20110823, end: 20120212
  5. MAGMITT [Concomitant]
     Indication: CONSTIPATION
     Route: 048
  6. DIAZEPAM [Concomitant]
     Indication: SCHIZOPHRENIA, PARANOID TYPE
     Route: 048
     Dates: start: 20100920, end: 20120212
  7. LUVOX [Concomitant]
     Indication: DEPRESSION
     Route: 048
  8. HALOPERIDOL DECANOATE [Suspect]
     Indication: SCHIZOPHRENIA
     Route: 030
     Dates: start: 20111206, end: 20120207
  9. INVEGA [Suspect]
     Indication: SCHIZOPHRENIA, PARANOID TYPE
     Route: 048
     Dates: start: 20110823, end: 20120212
  10. RIZE [Concomitant]
     Indication: ANXIETY
     Route: 048
     Dates: start: 20100713, end: 20120212
  11. LUVOX [Concomitant]
     Indication: ANXIETY
     Route: 048

REACTIONS (9)
  - INCONTINENCE [None]
  - NEUROLEPTIC MALIGNANT SYNDROME [None]
  - ASPARTATE AMINOTRANSFERASE INCREASED [None]
  - BLOOD CREATINE PHOSPHOKINASE INCREASED [None]
  - INFLUENZA [None]
  - BRONCHITIS [None]
  - HEAD INJURY [None]
  - CHILLS [None]
  - ALANINE AMINOTRANSFERASE INCREASED [None]
